FAERS Safety Report 20631667 (Version 1)
Quarter: 2022Q1

REPORT INFORMATION
  Report Type: Spontaneous
  Country: US (occurrence: None)
  Receive Date: 20220324
  Receipt Date: 20220324
  Transmission Date: 20220423
  Serious: No
  Sender: FDA-Public Use
  Company Number: None

PATIENT
  Sex: Male

DRUGS (1)
  1. STELARA [Suspect]
     Active Substance: USTEKINUMAB
     Indication: Idiopathic urticaria
     Dosage: 90MG EVERY 4 WEEKS SUB-Q
     Route: 058
     Dates: start: 202201

REACTIONS (3)
  - Diarrhoea [None]
  - Therapeutic product effect incomplete [None]
  - Condition aggravated [None]
